FAERS Safety Report 24626176 (Version 2)
Quarter: 2024Q4

REPORT INFORMATION
  Report Type: Spontaneous
  Country: US (occurrence: US)
  Receive Date: 20241115
  Receipt Date: 20241115
  Transmission Date: 20250114
  Serious: No
  Sender: SANOFI AVENTIS
  Company Number: US-SANOFI-02272763

PATIENT
  Age: 68 Year
  Sex: Female

DRUGS (1)
  1. TOUJEO MAX [Suspect]
     Active Substance: INSULIN GLARGINE
     Dosage: 20-24 UNITS QD

REACTIONS (5)
  - Injection site haemorrhage [Unknown]
  - Cough [Unknown]
  - Needle issue [Unknown]
  - Blood glucose decreased [Not Recovered/Not Resolved]
  - Hunger [Not Recovered/Not Resolved]
